FAERS Safety Report 8251925-0 (Version None)
Quarter: 2012Q2

REPORT INFORMATION
  Report Type: 
  Country: None (occurrence: None)
  Receive Date: 20120402
  Receipt Date: 20120327
  Transmission Date: 20120825
  Serious: Yes (Other)
  Sender: FDA-Public Use
  Company Number: US-PFIZER INC-2012078173

PATIENT
  Sex: Female
  Weight: 61.224 kg

DRUGS (4)
  1. GEODON [Suspect]
     Dosage: UNK
  2. GEODON [Suspect]
     Indication: SCHIZOAFFECTIVE DISORDER
     Dosage: 60 MG, 1X/DAY
     Route: 048
     Dates: start: 20110101
  3. GEODON [Suspect]
     Indication: SCHIZOPHRENIFORM DISORDER
     Dosage: 20MG IN AM AND 80MG IN PM
     Dates: start: 20110101
  4. XANAX [Concomitant]
     Indication: ANXIETY
     Dosage: 0.5 MG, 3X/DAY

REACTIONS (5)
  - PARANOIA [None]
  - DEPRESSION [None]
  - MALAISE [None]
  - FATIGUE [None]
  - ACTIVITIES OF DAILY LIVING IMPAIRED [None]
